FAERS Safety Report 12226495 (Version 1)
Quarter: 2016Q1

REPORT INFORMATION
  Report Type: Spontaneous
  Country: CH (occurrence: CH)
  Receive Date: 20160331
  Receipt Date: 20160331
  Transmission Date: 20160526
  Serious: Yes (Hospitalization)
  Sender: FDA-Public Use
  Company Number: CH-FRESENIUS KABI-FK201601599

PATIENT
  Age: 22 Year
  Sex: Female

DRUGS (18)
  1. LEVOTHYROXINE SODIUM FOR INJECTION (MANUFACTURER UNKNOWN) [Suspect]
     Active Substance: LEVOTHYROXINE SODIUM
     Indication: STEROID THERAPY
  2. DEHYDROCHLORMETHYLTESTOSTERONE [Suspect]
     Active Substance: CHLORODEHYDROMETHYLTESTOSTERONE
     Indication: MUSCLE BUILDING THERAPY
  3. INSULIN-LIKE GROWTH FACTOR 1 [Suspect]
     Active Substance: MECASERMIN
     Indication: MUSCLE BUILDING THERAPY
  4. INSULIN-LIKE GROWTH FACTOR 1 [Suspect]
     Active Substance: MECASERMIN
     Indication: STEROID THERAPY
  5. ALDACTONE [Suspect]
     Active Substance: SPIRONOLACTONE
     Indication: STEROID THERAPY
  6. ALDACTONE [Suspect]
     Active Substance: SPIRONOLACTONE
     Indication: MUSCLE BUILDING THERAPY
  7. LEVOTHYROXINE SODIUM FOR INJECTION (MANUFACTURER UNKNOWN) [Suspect]
     Active Substance: LEVOTHYROXINE SODIUM
     Indication: MUSCLE BUILDING THERAPY
     Route: 065
  8. LIOTHYRONINE [Suspect]
     Active Substance: LIOTHYRONINE
     Indication: MUSCLE BUILDING THERAPY
  9. STANOZOLOL [Suspect]
     Active Substance: STANOZOLOL
     Indication: MUSCLE BUILDING THERAPY
  10. STANOZOLOL [Suspect]
     Active Substance: STANOZOLOL
     Indication: STEROID THERAPY
  11. CLENBUTEROL [Suspect]
     Active Substance: CLENBUTEROL
     Indication: MUSCLE BUILDING THERAPY
  12. ANASTROZOLE (MANUFACTURER UNKNOWN) [Suspect]
     Active Substance: ANASTROZOLE
     Indication: MUSCLE BUILDING THERAPY
     Route: 065
  13. ANASTROZOLE (MANUFACTURER UNKNOWN) [Suspect]
     Active Substance: ANASTROZOLE
     Indication: STEROID THERAPY
  14. TORASEMIDE [Suspect]
     Active Substance: TORSEMIDE
     Indication: MUSCLE BUILDING THERAPY
  15. TORASEMIDE [Suspect]
     Active Substance: TORSEMIDE
     Indication: STEROID THERAPY
  16. LIOTHYRONINE [Suspect]
     Active Substance: LIOTHYRONINE
     Indication: STEROID THERAPY
  17. DEHYDROCHLORMETHYLTESTOSTERONE [Suspect]
     Active Substance: CHLORODEHYDROMETHYLTESTOSTERONE
     Indication: STEROID THERAPY
  18. CLENBUTEROL [Suspect]
     Active Substance: CLENBUTEROL
     Indication: STEROID THERAPY

REACTIONS (10)
  - Enlarged clitoris [None]
  - Acute respiratory distress syndrome [Recovered/Resolved]
  - Alanine aminotransferase increased [None]
  - Systemic inflammatory response syndrome [None]
  - Myocarditis [None]
  - Bronchitis chronic [None]
  - Hyperthyroidism [None]
  - Aspartate aminotransferase increased [None]
  - Rhinovirus infection [None]
  - Pneumonia viral [Recovered/Resolved]
